FAERS Safety Report 8074847-7 (Version None)
Quarter: 2012Q1

REPORT INFORMATION
  Report Type: 
  Country: None (occurrence: None)
  Receive Date: 20120126
  Receipt Date: 20120118
  Transmission Date: 20120608
  Serious: Yes (Hospitalization)
  Sender: FDA-Public Use
  Company Number: SZ-ASTRAZENECA-2012SE04127

PATIENT
  Age: 17 Year
  Sex: Male
  Weight: 80.4 kg

DRUGS (6)
  1. SEROQUEL XR [Suspect]
     Route: 048
     Dates: start: 20111003, end: 20111202
  2. SEROQUEL XR [Suspect]
     Route: 048
     Dates: start: 20111002
  3. LORAZEPAM [Suspect]
     Route: 048
     Dates: start: 20111119
  4. LORAZEPAM [Suspect]
     Route: 048
     Dates: start: 20111118
  5. LORAZEPAM [Suspect]
     Route: 048
     Dates: start: 20111118
  6. LORAZEPAM [Suspect]
     Route: 048
     Dates: start: 20111119

REACTIONS (1)
  - CONFUSIONAL STATE [None]
